FAERS Safety Report 11861951 (Version 1)
Quarter: 2015Q4

REPORT INFORMATION
  Report Type: Spontaneous
  Country: US (occurrence: US)
  Receive Date: 20151222
  Receipt Date: 20151222
  Transmission Date: 20160305
  Serious: No
  Sender: FDA-Public Use
  Company Number: US-ROCHE-1038202

PATIENT
  Sex: Male

DRUGS (3)
  1. PEGASYS [Suspect]
     Active Substance: PEGINTERFERON ALFA-2A
     Indication: CHRONIC HEPATITIS C
     Dosage: VIA PROCLICK AUTOINJECTOR
     Route: 058
     Dates: start: 20120203
  2. RIBAVIRIN. [Suspect]
     Active Substance: RIBAVIRIN
     Indication: CHRONIC HEPATITIS C
     Route: 048
     Dates: start: 20120203
  3. INCIVEK [Suspect]
     Active Substance: TELAPREVIR
     Indication: CHRONIC HEPATITIS C
     Route: 065
     Dates: start: 20120203

REACTIONS (7)
  - Cough [Unknown]
  - Chills [Unknown]
  - Dyspepsia [Unknown]
  - Myalgia [Unknown]
  - Pruritus [Unknown]
  - Hyperhidrosis [Unknown]
  - Headache [Unknown]
